FAERS Safety Report 24594581 (Version 3)
Quarter: 2024Q4

REPORT INFORMATION
  Report Type: Spontaneous
  Country: JP (occurrence: JP)
  Receive Date: 20241108
  Receipt Date: 20241113
  Transmission Date: 20250114
  Serious: Yes (Death, Hospitalization)
  Sender: BOEHRINGER INGELHEIM
  Company Number: JP-NBI-2024-BI-054618

PATIENT
  Age: 9 Decade
  Sex: Male

DRUGS (4)
  1. OFEV [Suspect]
     Active Substance: NINTEDANIB
     Indication: Interstitial lung disease
     Dosage: MORNING/EVENING
     Route: 048
     Dates: start: 20240821, end: 20240906
  2. OFEV [Suspect]
     Active Substance: NINTEDANIB
     Indication: Systemic scleroderma
     Dosage: MORNING/EVENING
     Route: 048
     Dates: start: 20240907, end: 20240910
  3. OFEV [Suspect]
     Active Substance: NINTEDANIB
     Dosage: (100-0-150)
     Route: 048
     Dates: start: 20240911, end: 20240916
  4. OFEV [Suspect]
     Active Substance: NINTEDANIB
     Dosage: MORNING/EVENING
     Route: 048
     Dates: start: 20240917

REACTIONS (2)
  - Systemic scleroderma [Fatal]
  - Hepatic function abnormal [Recovered/Resolved]

NARRATIVE: CASE EVENT DATE: 20240901
